FAERS Safety Report 8156202-4 (Version None)
Quarter: 2012Q1

REPORT INFORMATION
  Report Type: 
  Country: None (occurrence: None)
  Receive Date: 20120103
  Receipt Date: 20111115
  Transmission Date: 20120608
  Serious: No
  Sender: FDA-Public Use
  Company Number: AE-2011-002720

PATIENT
  Age: 55 Year
  Sex: Male
  Weight: 117.028 kg

DRUGS (7)
  1. INCIVEK [Suspect]
     Dosage: 2250 MG (750 MG, 3 IN 1 D), ORAL
     Route: 048
     Dates: start: 20111003
  2. PAMETANIDE [Concomitant]
  3. PEGASYS [Concomitant]
  4. ALLOPURINOL [Concomitant]
  5. MAGNESIUM (MAGNESIUM) [Concomitant]
  6. RIBAVIRIN [Concomitant]
  7. LOSARTAN POTASSIUM [Concomitant]

REACTIONS (1)
  - TACHYCARDIA [None]
